FAERS Safety Report 12330644 (Version 13)
Quarter: 2016Q4

REPORT INFORMATION
  Report Type: Report from Study
  Country: FR (occurrence: FR)
  Receive Date: 20160504
  Receipt Date: 20161125
  Transmission Date: 20170207
  Serious: Yes (Hospitalization)
  Sender: FDA-Public Use
  Company Number: FR-ROCHE-1546842

PATIENT
  Age: 62 Year
  Sex: Female
  Weight: 54 kg

DRUGS (14)
  1. AUGMENTIN [Concomitant]
     Active Substance: AMOXICILLIN\CLAVULANATE POTASSIUM
     Dosage: 3/0.2 GM
     Route: 065
     Dates: start: 201503
  2. TEMERIT [Concomitant]
     Active Substance: NEBIVOLOL
     Route: 065
     Dates: start: 201502
  3. IXPRIM [Concomitant]
     Active Substance: ACETAMINOPHEN\TRAMADOL HYDROCHLORIDE
     Dosage: 37.5 / 325 MG
     Route: 065
     Dates: start: 20150129
  4. AUGMENTIN [Concomitant]
     Active Substance: AMOXICILLIN\CLAVULANATE POTASSIUM
     Dosage: 1000/200 GM
     Route: 065
     Dates: start: 20150327, end: 20150404
  5. LASILIX [Concomitant]
     Active Substance: FUROSEMIDE
     Route: 065
     Dates: start: 2015, end: 20150422
  6. VEMURAFENIB [Suspect]
     Active Substance: VEMURAFENIB
     Dosage: RESTARTED ON: 28/APR/2015
     Route: 048
     Dates: start: 20150428
  7. PLAVIX [Suspect]
     Active Substance: CLOPIDOGREL BISULFATE
     Indication: CORONARY ARTERY STENOSIS
     Route: 065
     Dates: start: 20150225, end: 20150302
  8. TEMERIT [Concomitant]
     Active Substance: NEBIVOLOL
     Route: 065
     Dates: start: 201503
  9. VEMURAFENIB [Suspect]
     Active Substance: VEMURAFENIB
     Dosage: DATE OF LAST DOSE PRIOR TO LEFT CORONARY STENOSIS: 25/FEB/2015.
     Route: 048
     Dates: start: 20150221
  10. VEMURAFENIB [Suspect]
     Active Substance: VEMURAFENIB
     Dosage: DATE OF LAST DOSE PRIOR TO WORSENING NAUSEA: 27/MAR/2015?DATE OF LAST DOSE PRIOR TO MYOCARDIAL INFAR
     Route: 048
     Dates: start: 20150227, end: 20150327
  11. LORAMYC [Concomitant]
     Active Substance: MICONAZOLE
     Route: 065
     Dates: start: 201503
  12. DERMOVAL (FRANCE) [Concomitant]
     Route: 065
     Dates: start: 201509
  13. VEMURAFENIB [Suspect]
     Active Substance: VEMURAFENIB
     Indication: NON-SMALL CELL LUNG CANCER
     Dosage: DATE OF LAST DOSE PRIOR TO SAE: 20/FEB/2015.
     Route: 048
     Dates: start: 20150205
  14. PRIMPERAN [Concomitant]
     Active Substance: METOCLOPRAMIDE HYDROCHLORIDE
     Route: 065
     Dates: start: 201502

REACTIONS (4)
  - Acute kidney injury [Recovered/Resolved]
  - Myocardial infarction [Recovered/Resolved with Sequelae]
  - Pericarditis [Recovered/Resolved]
  - Acute coronary syndrome [Recovered/Resolved]

NARRATIVE: CASE EVENT DATE: 20150225
